FAERS Safety Report 8216769-4 (Version None)
Quarter: 2012Q1

REPORT INFORMATION
  Report Type: 
  Country: None (occurrence: None)
  Receive Date: 20120316
  Receipt Date: 20120315
  Transmission Date: 20120608
  Serious: Yes (Hospitalization)
  Sender: FDA-Public Use
  Company Number: GB-ROCHE-792763

PATIENT
  Sex: Female
  Weight: 47 kg

DRUGS (8)
  1. FERROUS SULFATE TAB [Concomitant]
  2. ALBUTEROL [Concomitant]
  3. NAPROXEN [Concomitant]
  4. FOLIC ACID [Concomitant]
  5. BECLOMETHASONE DIPROPIONATE [Concomitant]
     Dosage: 1 PUFF
  6. METHOTREXATE [Concomitant]
     Indication: PRODUCT USED FOR UNKNOWN INDICATION
     Route: 065
     Dates: start: 20110126, end: 20110622
  7. ACETAMINOPHEN AND CODEINE PHOSPHATE [Concomitant]
     Dosage: 30/500 PRN
  8. MABTHERA [Suspect]
     Indication: RHEUMATOID ARTHRITIS
     Route: 065

REACTIONS (2)
  - PNEUMONIA [None]
  - NEUTROPENIC SEPSIS [None]
